FAERS Safety Report 14994491 (Version 1)
Quarter: 2018Q2

REPORT INFORMATION
  Report Type: Spontaneous
  Country: GB (occurrence: GB)
  Receive Date: 20180611
  Receipt Date: 20180611
  Transmission Date: 20180711
  Serious: Yes (Disabling)
  Sender: FDA-Public Use
  Company Number: GB-009507513-1806GBR001454

PATIENT
  Age: 72 Year
  Sex: Female

DRUGS (11)
  1. OMEPRAZOLE. [Concomitant]
     Active Substance: OMEPRAZOLE
     Dosage: EACH MORNING
     Route: 048
  2. NYSTATIN. [Concomitant]
     Active Substance: NYSTATIN
     Dosage: 4 ML, QD
     Route: 048
  3. ZOPICLONE [Concomitant]
     Active Substance: ZOPICLONE
     Dosage: AT NIGHT
     Route: 048
  4. CIPROFLOXACIN. [Concomitant]
     Active Substance: CIPROFLOXACIN
     Dosage: 500 MG, QD
     Route: 048
  5. CHLORHEXIDINE HYDROCHLORIDE [Concomitant]
     Active Substance: CHLORHEXIDINE HYDROCHLORIDE
     Dosage: 40 ML, QD
     Route: 061
  6. VALACYCLOVIR HYDROCHLORIDE. [Concomitant]
     Active Substance: VALACYCLOVIR HYDROCHLORIDE
     Dosage: 500 MG, QD
     Route: 048
  7. PREDNISOLONE. [Concomitant]
     Active Substance: PREDNISOLONE
     Dosage: EACH MORNING
     Route: 048
  8. CYCLOSPORINE. [Concomitant]
     Active Substance: CYCLOSPORINE
     Dosage: 150 MG, QD
     Route: 048
  9. SULFAMETHOXAZOLE (+) TRIMETHOPRIM [Concomitant]
     Active Substance: SULFAMETHOXAZOLE\TRIMETHOPRIM
     Indication: ANTIBIOTIC PROPHYLAXIS
     Dosage: 80MG/400MG MONDAY, WEDNESDAY, FRIDAY
     Route: 050
  10. NOXAFIL [Suspect]
     Active Substance: POSACONAZOLE
     Indication: APLASTIC ANAEMIA
     Dosage: 600 MG, QD
     Route: 048
     Dates: start: 20180501, end: 20180508
  11. BISOPROLOL [Concomitant]
     Active Substance: BISOPROLOL

REACTIONS (3)
  - Incorrect drug dosage form administered [Unknown]
  - Hallucination, auditory [Recovering/Resolving]
  - Accidental overdose [Unknown]

NARRATIVE: CASE EVENT DATE: 20180505
